FAERS Safety Report 8934701 (Version 1)
Quarter: 2012Q4

REPORT INFORMATION
  Report Type: 
  Country: None (occurrence: US)
  Receive Date: 20121129
  Receipt Date: 20121129
  Transmission Date: 20130627
  Serious: Yes (Other)
  Sender: FDA-Public Use
  Company Number: CHPA2012US023989

PATIENT
  Age: 87 Year
  Sex: Female

DRUGS (2)
  1. SLOW FE BROWN [Suspect]
     Indication: ANAEMIA
     Dosage: UNK, UNK
     Route: 048
  2. SLOW FE BROWN [Suspect]
     Dosage: UNK, UNK
     Route: 048

REACTIONS (4)
  - Anaemia [Not Recovered/Not Resolved]
  - Disease recurrence [Not Recovered/Not Resolved]
  - Constipation [Not Recovered/Not Resolved]
  - Expired drug administered [Unknown]
